FAERS Safety Report 8525804-5 (Version None)
Quarter: 2012Q3

REPORT INFORMATION
  Report Type: 
  Country: None (occurrence: None)
  Receive Date: 20120720
  Receipt Date: 20120709
  Transmission Date: 20120928
  Serious: No
  Sender: FDA-Public Use
  Company Number: US-ASTRAZENECA-2011SE62059

PATIENT
  Age: 59 Year
  Sex: Female

DRUGS (3)
  1. TOPROL-XL [Suspect]
     Dosage: TWO PILLS IN THE MORNING AND TWO PILLS AT NIGHT
     Route: 048
  2. SYMBICORT [Suspect]
     Dosage: ADDITIONAL PUFF OF SYMBICORT UNKNOWN FREQUENCY
     Route: 055
  3. TOPROL-XL [Suspect]
     Route: 048

REACTIONS (3)
  - MEMORY IMPAIRMENT [None]
  - STRESS [None]
  - INTENTIONAL DRUG MISUSE [None]
